FAERS Safety Report 9151572 (Version 1)
Quarter: 2013Q1

REPORT INFORMATION
  Report Type: Spontaneous
  Country: US (occurrence: US)
  Receive Date: 20130308
  Receipt Date: 20130308
  Transmission Date: 20140127
  Serious: No
  Sender: FDA-Public Use
  Company Number: US-GLAXOSMITHKLINE-A0989328A

PATIENT
  Age: 29 Year
  Sex: Female

DRUGS (3)
  1. NICORETTE [Suspect]
     Indication: SMOKING CESSATION THERAPY
     Dates: start: 20120807, end: 20120809
  2. NICORETTE [Suspect]
     Indication: SMOKING CESSATION THERAPY
  3. NICODERM CQ [Suspect]
     Indication: SMOKING CESSATION THERAPY
     Route: 062
     Dates: start: 2012

REACTIONS (7)
  - Gingival inflammation [Recovered/Resolved]
  - Gingival bleeding [Recovered/Resolved]
  - Premature baby [Unknown]
  - Application site erythema [Unknown]
  - Application site irritation [Unknown]
  - Nausea [Unknown]
  - Exposure during pregnancy [Unknown]
